FAERS Safety Report 22527684 (Version 2)
Quarter: 2023Q2

REPORT INFORMATION
  Report Type: Report from Study
  Country: EG (occurrence: EG)
  Receive Date: 20230606
  Receipt Date: 20230616
  Transmission Date: 20230722
  Serious: Yes (Life-Threatening, Other)
  Sender: FDA-Public Use
  Company Number: EG-002147023-NVSC2023EG128170

PATIENT
  Age: 34 Year
  Sex: Female

DRUGS (8)
  1. COSENTYX [Suspect]
     Active Substance: SECUKINUMAB
     Indication: Ankylosing spondylitis
     Dosage: 1 DOSAGE FORM, QMO
     Route: 058
     Dates: start: 202204
  2. COSENTYX [Suspect]
     Active Substance: SECUKINUMAB
     Dosage: UNK(3 PACKS)
     Route: 065
  3. COSENTYX [Suspect]
     Active Substance: SECUKINUMAB
     Dosage: UNK(1 PACK)
     Route: 065
  4. COSENTYX [Suspect]
     Active Substance: SECUKINUMAB
     Dosage: UNK(2 PACKS)
     Route: 065
  5. COSENTYX [Suspect]
     Active Substance: SECUKINUMAB
     Dosage: UNK(1 PACK)
     Route: 065
  6. COSENTYX [Suspect]
     Active Substance: SECUKINUMAB
     Dosage: 1 DOSAGE FORM, QW
     Route: 065
  7. GAPTIN [Concomitant]
     Indication: Nervous system disorder
     Dosage: 1 DOSAGE FORM, QD(AFTER DINNER, 100)
     Route: 065
     Dates: start: 202204
  8. HYDROXYCHLOROQUINE SULFATE [Concomitant]
     Active Substance: HYDROXYCHLOROQUINE SULFATE
     Indication: Nervous system disorder
     Dosage: 2 DOSAGE FORM (2 TABLETS, 1 AT MORNING AND 1 AT NIGHT)
     Route: 065
     Dates: start: 202204

REACTIONS (13)
  - Tachycardia [Recovering/Resolving]
  - Chest pain [Not Recovered/Not Resolved]
  - Stress [Unknown]
  - Ankylosing spondylitis [Not Recovered/Not Resolved]
  - Gait disturbance [Recovering/Resolving]
  - Back pain [Recovering/Resolving]
  - Pain in extremity [Recovering/Resolving]
  - Headache [Not Recovered/Not Resolved]
  - Abdominal distension [Not Recovered/Not Resolved]
  - Nasopharyngitis [Not Recovered/Not Resolved]
  - Cough [Not Recovered/Not Resolved]
  - Fatigue [Unknown]
  - Drug ineffective [Unknown]

NARRATIVE: CASE EVENT DATE: 20220401
